FAERS Safety Report 9241478 (Version 1)
Quarter: 2013Q2

REPORT INFORMATION
  Report Type: Spontaneous
  Country: US (occurrence: US)
  Receive Date: 20130419
  Receipt Date: 20130419
  Transmission Date: 20140414
  Serious: Yes (Hospitalization, Other)
  Sender: FDA-Public Use
  Company Number: US-ASTELLAS-2013US004151

PATIENT
  Age: 86 Year
  Sex: Male

DRUGS (3)
  1. XTANDI [Suspect]
     Indication: PROSTATE CANCER
     Dosage: 160 MG, UID/QD
     Route: 048
     Dates: start: 20121212
  2. XTANDI [Suspect]
     Dosage: 40 MG, UID/QD
     Route: 048
     Dates: start: 201301
  3. XTANDI [Suspect]
     Dosage: 80 MG, UID/QD
     Route: 048
     Dates: start: 2013

REACTIONS (6)
  - Aphagia [Unknown]
  - Dysstasia [Unknown]
  - Dehydration [Unknown]
  - Diarrhoea [Unknown]
  - Bone cancer [Unknown]
  - Cancer pain [Unknown]
